FAERS Safety Report 7581237-X (Version None)
Quarter: 2011Q2

REPORT INFORMATION
  Report Type: 
  Country: None (occurrence: None)
  Receive Date: 20110629
  Receipt Date: 20110621
  Transmission Date: 20111010
  Serious: Yes (Other)
  Sender: FDA-Public Use
  Company Number: JP-PFIZER INC-2011130551

PATIENT
  Age: 77 Year
  Sex: Female

DRUGS (2)
  1. UNASYN [Suspect]
     Indication: PNEUMONIA
     Dosage: UNK
     Route: 042
     Dates: end: 20110617
  2. BISOLVON [Concomitant]
     Dosage: UNK
     Dates: start: 20110615, end: 20110617

REACTIONS (1)
  - BLOOD CREATINE PHOSPHOKINASE INCREASED [None]
